FAERS Safety Report 8158786-9 (Version None)
Quarter: 2012Q1

REPORT INFORMATION
  Report Type: 
  Country: None (occurrence: None)
  Receive Date: 20120217
  Receipt Date: 20120213
  Transmission Date: 20120608
  Serious: Yes (Death)
  Sender: FDA-Public Use
  Company Number: 2012SP008295

PATIENT
  Age: 59 Year
  Sex: Male

DRUGS (7)
  1. ETIZOLAM [Concomitant]
  2. PAROXETINE [Concomitant]
  3. MIRTAZAPINE [Suspect]
     Indication: DEPRESSION
     Dosage: 15 MG;QD;PO;7.5 MG;QD;PO;15 MG;QD;PO
     Route: 048
     Dates: start: 20110304, end: 20110315
  4. MIRTAZAPINE [Suspect]
     Indication: DEPRESSION
     Dosage: 15 MG;QD;PO;7.5 MG;QD;PO;15 MG;QD;PO
     Route: 048
     Dates: start: 20110203, end: 20110303
  5. MIRTAZAPINE [Suspect]
     Indication: DEPRESSION
     Dosage: 15 MG;QD;PO;7.5 MG;QD;PO;15 MG;QD;PO
     Route: 048
     Dates: start: 20101020, end: 20110202
  6. SULPIRIDE [Concomitant]
  7. HYDROCHORIDE [Concomitant]

REACTIONS (2)
  - COMPLETED SUICIDE [None]
  - ASPHYXIA [None]
